FAERS Safety Report 5593032-1 (Version None)
Quarter: 2008Q1

REPORT INFORMATION
  Report Type: 
  Country: None (occurrence: None)
  Receive Date: 20080116
  Receipt Date: 20080109
  Transmission Date: 20080703
  Serious: Yes (Hospitalization, Other)
  Sender: FDA-Public Use
  Company Number: US-JNJFOC-20080102436

PATIENT
  Age: 85 Year
  Sex: Female

DRUGS (17)
  1. LEVAQUIN [Suspect]
     Indication: PNEUMONIA
     Route: 042
  2. SOLU-MEDROL [Concomitant]
     Route: 048
  3. ATROVENT [Concomitant]
     Route: 048
  4. ASPIRIN [Concomitant]
     Route: 048
  5. TYLENOL [Concomitant]
     Route: 048
  6. LOVENOX [Concomitant]
     Route: 065
  7. MOTRIN [Concomitant]
     Route: 065
  8. SURFAK [Concomitant]
     Route: 065
  9. PLENDIL [Concomitant]
     Route: 065
  10. ADVIR [Concomitant]
     Route: 065
  11. CALCIUM GLUCONATE [Concomitant]
     Route: 065
  12. EVISTA [Concomitant]
     Route: 065
  13. ROBITUSSIN [Concomitant]
     Route: 065
  14. PRINIVIL [Concomitant]
     Route: 065
  15. LOPRESSOR [Concomitant]
     Route: 065
  16. BUMEX [Concomitant]
     Route: 042
  17. VENTOLIN [Concomitant]
     Route: 048

REACTIONS (2)
  - ELECTROCARDIOGRAM REPOLARISATION ABNORMALITY [None]
  - VENTRICULAR TACHYCARDIA [None]
